FAERS Safety Report 24804573 (Version 1)
Quarter: 2025Q1

REPORT INFORMATION
  Report Type: Spontaneous
  Country: FR (occurrence: FR)
  Receive Date: 20250103
  Receipt Date: 20250103
  Transmission Date: 20250408
  Serious: Yes (Other)
  Sender: SANOFI AVENTIS
  Company Number: None

PATIENT
  Age: 40 Year
  Sex: Male

DRUGS (3)
  1. DUPIXENT [Suspect]
     Active Substance: DUPILUMAB
     Indication: Eczema
     Dosage: 1.000DF Q15D
     Route: 058
     Dates: start: 20220106, end: 20221205
  2. DUPIXENT [Suspect]
     Active Substance: DUPILUMAB
     Dosage: 1.000DF Q15D
     Route: 058
     Dates: start: 20231218
  3. TRALOKINUMAB [Suspect]
     Active Substance: TRALOKINUMAB
     Indication: Eczema
     Dosage: 1.000DF Q15D
     Route: 058
     Dates: start: 20221219, end: 20230204

REACTIONS (3)
  - Sickle cell anaemia with crisis [Recovered/Resolved]
  - Conjunctivitis [Recovering/Resolving]
  - Arthralgia [Recovered/Resolved]

NARRATIVE: CASE EVENT DATE: 20220101
